FAERS Safety Report 7341666-6 (Version None)
Quarter: 2011Q1

REPORT INFORMATION
  Report Type: 
  Country: None (occurrence: None)
  Receive Date: 20110309
  Receipt Date: 20110304
  Transmission Date: 20110831
  Serious: Yes (Other)
  Sender: FDA-Public Use
  Company Number: US-PFIZER INC-2011048367

PATIENT
  Sex: Male
  Weight: 105.67 kg

DRUGS (6)
  1. VALIUM [Concomitant]
     Indication: SLEEP DISORDER
     Dosage: UNK
  2. LIDODERM [Concomitant]
     Dosage: UNK
  3. WARFARIN [Concomitant]
     Dosage: UNK
  4. VICODIN [Concomitant]
     Dosage: UNK, AS NEEDED
  5. LYRICA [Suspect]
     Indication: PROCEDURAL PAIN
     Dosage: 75 MG, 3X/DAY
     Route: 048
     Dates: start: 20110201
  6. MOMETASONE [Concomitant]
     Dosage: UNK

REACTIONS (1)
  - TREMOR [None]
